FAERS Safety Report 4655219-1 (Version None)
Quarter: 2005Q2

REPORT INFORMATION
  Report Type: 
  Country: None (occurrence: None)
  Receive Date: 20050506
  Receipt Date: 20041203
  Transmission Date: 20051028
  Serious: Yes (Other)
  Sender: FDA-Public Use
  Company Number: GB-GLAXOSMITHKLINE-B0361154A

PATIENT
  Sex: Female

DRUGS (3)
  1. PAROXETINE HYDROCHLORIDE [Suspect]
     Route: 065
  2. LITHIUM CARBONATE [Concomitant]
  3. EPILIM [Concomitant]

REACTIONS (10)
  - AGGRESSION [None]
  - ALCOHOLISM [None]
  - ANGER [None]
  - DELUSION [None]
  - ILL-DEFINED DISORDER [None]
  - INSOMNIA [None]
  - OBSESSIVE-COMPULSIVE DISORDER [None]
  - PSYCHIATRIC SYMPTOM [None]
  - SLEEP DISORDER [None]
  - SUICIDAL IDEATION [None]
